FAERS Safety Report 14662892 (Version 1)
Quarter: 2018Q1

REPORT INFORMATION
  Report Type: Spontaneous
  Country: FR (occurrence: FR)
  Receive Date: 20180321
  Receipt Date: 20180321
  Transmission Date: 20180509
  Serious: Yes (Other)
  Sender: FDA-Public Use
  Company Number: FR-MERCK KGAA-2044186

PATIENT
  Age: 60 Year
  Sex: Male

DRUGS (2)
  1. NOVOTHYROX [Suspect]
     Active Substance: LEVOTHYROXINE SODIUM
     Indication: HYPOTHYROIDISM
     Dates: start: 20170615
  2. NOVOTHYROX [Suspect]
     Active Substance: LEVOTHYROXINE SODIUM
     Indication: BASEDOW^S DISEASE
     Dates: start: 20170615

REACTIONS (19)
  - Arthralgia [None]
  - Chest pain [None]
  - Depression [None]
  - Anxiety [None]
  - Pain [None]
  - Back pain [None]
  - Abdominal pain [None]
  - Irritability [None]
  - Loss of personal independence in daily activities [None]
  - Fatigue [None]
  - Visual acuity reduced [None]
  - Diarrhoea [None]
  - Neck pain [None]
  - Visual impairment [None]
  - Tremor [None]
  - Muscle spasms [None]
  - Pain of skin [None]
  - Weight increased [None]
  - Blood thyroid stimulating hormone increased [Recovering/Resolving]

NARRATIVE: CASE EVENT DATE: 201706
